FAERS Safety Report 4646976-9 (Version None)
Quarter: 2005Q2

REPORT INFORMATION
  Report Type: 
  Country: None (occurrence: None)
  Receive Date: 20050331
  Receipt Date: 20050214
  Transmission Date: 20051028
  Serious: No
  Sender: FDA-Public Use
  Company Number: 05P-163-0290511-00

PATIENT
  Age: 52 Year
  Sex: Female
  Weight: 115 kg

DRUGS (12)
  1. HUMIRA [Suspect]
     Indication: RHEUMATOID ARTHRITIS
     Dosage: 40 MG, 1 IN 2 WK, SUBCUTANEOUS
     Route: 058
     Dates: start: 20041228
  2. LEXAPRO [Concomitant]
  3. BUPROPION HYDROCHLORIDE [Concomitant]
  4. RAMIPRIL [Concomitant]
  5. PREDNISONE [Concomitant]
  6. METHOTREXATE SODIUM [Concomitant]
  7. FOLIC ACID [Concomitant]
  8. ALENDRONATE SODIUM [Concomitant]
  9. DIAZIDE [Concomitant]
  10. POTASSIUM CHLORIDE [Concomitant]
  11. LANSOPRAZOLE [Concomitant]
  12. BUDESONIDE [Concomitant]

REACTIONS (2)
  - ARTHRALGIA [None]
  - SYSTEMIC LUPUS ERYTHEMATOSUS RASH [None]
